FAERS Safety Report 5693057-1 (Version None)
Quarter: 2008Q2

REPORT INFORMATION
  Report Type: 
  Country: None (occurrence: None)
  Receive Date: 20080401
  Receipt Date: 20080401
  Transmission Date: 20081010
  Serious: Yes (Other)
  Sender: FDA-Public Use
  Company Number: None

PATIENT
  Age: 79 Year
  Sex: Male
  Weight: 70.3075 kg

DRUGS (2)
  1. LIPITOR [Suspect]
     Indication: CORONARY ARTERY DISEASE
     Dosage: 1 PILL PER DAY ONE PER DAY
     Dates: start: 19950420, end: 20080201
  2. ZETIA [Suspect]
     Indication: CORONARY ARTERY DISEASE
     Dosage: 1 PILL PER DAY ONE PER DAY
     Dates: start: 19960120, end: 20080207

REACTIONS (3)
  - FATIGUE [None]
  - MUSCLE ATROPHY [None]
  - MUSCLE SPASMS [None]
